FAERS Safety Report 9193329 (Version 3)
Quarter: 2013Q4

REPORT INFORMATION
  Report Type: Spontaneous
  Country: US (occurrence: None)
  Receive Date: 20120703
  Receipt Date: 20131226
  Transmission Date: 20140711
  Serious: Yes (Other)
  Sender: FDA-Public Use
  Company Number: PHEH2012US005101

PATIENT
  Age: 38 Year
  Sex: Female
  Weight: 69.3 kg

DRUGS (1)
  1. GILENYA [Suspect]
     Route: 048
     Dates: start: 20110926

REACTIONS (3)
  - Headache [None]
  - Hypoaesthesia [None]
  - Migraine [None]
